FAERS Safety Report 10052181 (Version 2)
Quarter: 2014Q2

REPORT INFORMATION
  Report Type: Spontaneous
  Country: JP (occurrence: JP)
  Receive Date: 20140402
  Receipt Date: 20140522
  Transmission Date: 20141212
  Serious: Yes (Other)
  Sender: FDA-Public Use
  Company Number: JP-ELI_LILLY_AND_COMPANY-JP201403008162

PATIENT
  Age: 74 Year
  Sex: Female

DRUGS (2)
  1. GEMZAR [Suspect]
     Indication: TRANSITIONAL CELL CARCINOMA
     Dosage: 1000 MG, UNK
     Route: 042
     Dates: start: 201004
  2. DOCETAXEL [Suspect]
     Indication: TRANSITIONAL CELL CARCINOMA
     Dosage: 60 MG, UNK
     Route: 065
     Dates: start: 201004

REACTIONS (3)
  - Gastrointestinal disorder [Unknown]
  - Metastases to liver [Unknown]
  - Haematotoxicity [Unknown]
